FAERS Safety Report 13740752 (Version 1)
Quarter: 2017Q3

REPORT INFORMATION
  Report Type: Spontaneous
  Country: US (occurrence: US)
  Receive Date: 20170711
  Receipt Date: 20170711
  Transmission Date: 20171127
  Serious: No
  Sender: FDA-Public Use
  Company Number: US-ELI_LILLY_AND_COMPANY-US201706012507

PATIENT
  Age: 40 Year
  Sex: Female

DRUGS (6)
  1. STRATTERA [Suspect]
     Active Substance: ATOMOXETINE HYDROCHLORIDE
     Dosage: 50 UNK, UNK
     Route: 048
  2. IMITREX [Concomitant]
     Active Substance: SUMATRIPTAN SUCCINATE
     Indication: HEADACHE
  3. NATURE-THROID [Concomitant]
     Active Substance: THYROID, PORCINE
     Indication: PRODUCT USED FOR UNKNOWN INDICATION
     Dosage: 81.5 UG, DAILY
     Route: 065
  4. ALLEGRA-D [Concomitant]
     Active Substance: FEXOFENADINE\PSEUDOEPHEDRINE
     Indication: SINUSITIS
  5. STRATTERA [Suspect]
     Active Substance: ATOMOXETINE HYDROCHLORIDE
     Indication: ATTENTION DEFICIT/HYPERACTIVITY DISORDER
     Dosage: 25 MG, DAILY
     Route: 048
     Dates: start: 201706
  6. ALLEGRA-D [Concomitant]
     Active Substance: FEXOFENADINE\PSEUDOEPHEDRINE
     Indication: HYPERSENSITIVITY

REACTIONS (7)
  - Disturbance in attention [Unknown]
  - Anxiety [Unknown]
  - Feeling abnormal [Unknown]
  - Memory impairment [Unknown]
  - Feeling jittery [Unknown]
  - Tension [Unknown]
  - Headache [Unknown]

NARRATIVE: CASE EVENT DATE: 201706
